FAERS Safety Report 9055979 (Version 2)
Quarter: 2013Q1

REPORT INFORMATION
  Report Type: Spontaneous
  Country: US (occurrence: US)
  Receive Date: 20130205
  Receipt Date: 20130325
  Transmission Date: 20140127
  Serious: Yes (Other)
  Sender: FDA-Public Use
  Company Number: PHEH2013US002810

PATIENT
  Age: 61 None
  Sex: Female
  Weight: 49.89 kg

DRUGS (2)
  1. RECLAST [Suspect]
     Indication: OSTEOPOROSIS POSTMENOPAUSAL
     Dosage: 5 MG/100 ML, ONCE A YEAR
     Route: 042
     Dates: start: 20130125
  2. VIREAD [Concomitant]
     Dosage: 300 MG, UNK
     Route: 048
     Dates: start: 20080910

REACTIONS (7)
  - Joint abscess [Recovered/Resolved]
  - Arthralgia [Recovered/Resolved]
  - Pyrexia [Recovered/Resolved]
  - Joint swelling [Recovered/Resolved]
  - Local swelling [Recovered/Resolved]
  - Oedema [Recovered/Resolved]
  - Musculoskeletal pain [Recovered/Resolved]
